FAERS Safety Report 17594769 (Version 3)
Quarter: 2020Q4

REPORT INFORMATION
  Report Type: Report from Study
  Country: US (occurrence: US)
  Receive Date: 20200327
  Receipt Date: 20201007
  Transmission Date: 20210113
  Serious: Yes (Other)
  Sender: FDA-Public Use
  Company Number: NVSC2020US083623

PATIENT
  Age: 85 Year
  Sex: Male

DRUGS (1)
  1. ENTRESTO [Suspect]
     Active Substance: SACUBITRIL\VALSARTAN
     Indication: CARDIAC FAILURE
     Dosage: 1 DF (24/26 MG), BID
     Route: 048
     Dates: start: 20200215

REACTIONS (3)
  - Atrial fibrillation [Unknown]
  - Blood potassium increased [Unknown]
  - Renal impairment [Unknown]

NARRATIVE: CASE EVENT DATE: 20200324
